FAERS Safety Report 7739073-7 (Version None)
Quarter: 2011Q3

REPORT INFORMATION
  Report Type: 
  Country: None (occurrence: None)
  Receive Date: 20110906
  Receipt Date: 20110822
  Transmission Date: 20111222
  Serious: Yes (Hospitalization)
  Sender: FDA-Public Use
  Company Number: TPA2011A05125

PATIENT
  Age: 73 Year
  Sex: Female
  Weight: 49.8957 kg

DRUGS (1)
  1. ACTOS [Suspect]
     Indication: TYPE 2 DIABETES MELLITUS
     Dosage: 15 MG, 1 IN 1 D, PER ORAL
     Route: 048
     Dates: start: 20060101

REACTIONS (4)
  - ANKLE FRACTURE [None]
  - FALL [None]
  - WEIGHT DECREASED [None]
  - BLOOD GLUCOSE DECREASED [None]
